FAERS Safety Report 5971078 (Version 28)
Quarter: 2013Q2

REPORT INFORMATION
  Report Type: Spontaneous
  Country: US (occurrence: US)
  Receive Date: 20060127
  Receipt Date: 20130508
  Transmission Date: 20140414
  Serious: Yes (Hospitalization, Other)
  Sender: FDA-Public Use
  Company Number: PHEH2006US01242

PATIENT
  Age: 49 Year
  Sex: Female
  Weight: 59.86 kg

DRUGS (59)
  1. ZOMETA [Suspect]
     Indication: BREAST CANCER METASTATIC
     Dosage: 4 MG, QMO
     Dates: start: 200208, end: 200510
  2. FEMARA [Concomitant]
     Indication: BREAST CANCER METASTATIC
     Dates: start: 200208
  3. ZELNORM                                 /USA/ [Concomitant]
     Indication: IRRITABLE BOWEL SYNDROME
  4. CELEXA [Concomitant]
  5. SYNTHROID [Concomitant]
  6. DOXYCYCLINE [Concomitant]
  7. ZYRTEC [Concomitant]
  8. SINGULAIR [Concomitant]
  9. DIFLUCAN [Concomitant]
  10. CONCERTA [Concomitant]
  11. FASLODEX [Concomitant]
     Dosage: 5 ML, QMO
     Route: 030
  12. BEVACIZUMAB [Concomitant]
  13. QVAR [Concomitant]
  14. NASACORT [Concomitant]
  15. PAXIL [Concomitant]
  16. MARINOL [Concomitant]
  17. MARIJUANA [Concomitant]
  18. CORTISONE [Concomitant]
  19. LEVOTHYROXINE [Concomitant]
  20. LEXAPRO [Concomitant]
  21. WELLBUTRIN XL [Concomitant]
  22. SIMVASTATIN [Concomitant]
  23. ZELNORM                                 /CAN/ [Concomitant]
  24. PROVIGIL [Concomitant]
  25. VALTREX [Concomitant]
  26. AZITHROMYCIN [Concomitant]
  27. PANTOPRAZOLE [Concomitant]
  28. TAMOXIFEN [Concomitant]
  29. DRONABINOL [Concomitant]
  30. AVASTIN [Concomitant]
  31. LEVOXYL [Concomitant]
  32. AMBIEN [Concomitant]
  33. KEFLEX                                  /UNK/ [Concomitant]
  34. ABILIFY [Concomitant]
  35. ATIVAN [Concomitant]
  36. RADIATION THERAPY [Concomitant]
  37. BECLOMETHASONE AQUEOUS [Concomitant]
  38. ACIPHEX [Concomitant]
  39. SPIRIVA ^BOEHRINGER INGELHEIM^ [Concomitant]
  40. PROZAC [Concomitant]
  41. ASPIRIN ^BAYER^ [Concomitant]
  42. ACYCLOVIR [Concomitant]
  43. PREDNISOLONE [Concomitant]
  44. PYRIDIUM [Concomitant]
  45. MYCOLOG [Concomitant]
  46. ESTRING [Concomitant]
  47. SINEQUAN [Concomitant]
  48. LORAZEPAM [Concomitant]
  49. MONTELUKAST [Concomitant]
  50. METOCLOPRAMIDE [Concomitant]
  51. REGLAN                                  /USA/ [Concomitant]
  52. TEMAZEPAM [Concomitant]
  53. ACIDOPHILUS ^ZYMA^ [Concomitant]
  54. TETRACYCLINE [Concomitant]
  55. PRILOSEC [Concomitant]
  56. MOTRIN [Concomitant]
  57. GABAPENTIN [Concomitant]
  58. LUNESTA [Concomitant]
  59. BENADRYL ^PFIZER WARNER-LAMBERT^ [Concomitant]

REACTIONS (112)
  - Eosinophil count increased [Unknown]
  - White blood cell count decreased [Unknown]
  - Haematocrit increased [Unknown]
  - Blood calcium increased [Unknown]
  - Micturition urgency [Unknown]
  - Pollakiuria [Unknown]
  - Dysuria [Unknown]
  - Chills [Unknown]
  - Vulvovaginal dryness [Unknown]
  - Sleep disorder [Unknown]
  - Stress [Unknown]
  - Libido decreased [Unknown]
  - Fibrocystic breast disease [Unknown]
  - Blood cholesterol increased [Unknown]
  - Blood cortisol abnormal [Unknown]
  - Alopecia [Unknown]
  - Blood thyroid stimulating hormone decreased [Unknown]
  - Lung disorder [Unknown]
  - Metastases to bone [Unknown]
  - Adjustment disorder [Unknown]
  - Anxiety [Unknown]
  - Eye pruritus [Unknown]
  - Lacrimation increased [Unknown]
  - Subcutaneous abscess [Unknown]
  - Vomiting [Not Recovered/Not Resolved]
  - Decreased appetite [Unknown]
  - Meniscus injury [Unknown]
  - Cartilage atrophy [Unknown]
  - Hypothyroidism [Unknown]
  - Muscle strain [Unknown]
  - Radiculitis [Unknown]
  - Intervertebral disc degeneration [Unknown]
  - Amnesia [Unknown]
  - Balance disorder [Unknown]
  - Bladder disorder [Unknown]
  - Ligament rupture [Unknown]
  - Neoplasm progression [Unknown]
  - Malignant neoplasm progression [Unknown]
  - Pyrexia [Unknown]
  - Oral pain [Unknown]
  - Diarrhoea [Unknown]
  - Osteoporosis [Unknown]
  - Joint effusion [Unknown]
  - Joint injury [Unknown]
  - Parkinson^s disease [Unknown]
  - Neck pain [Unknown]
  - Swelling [Unknown]
  - Erythema [Unknown]
  - Axillary pain [Unknown]
  - Rotator cuff syndrome [Unknown]
  - Osteoarthritis [Unknown]
  - Intervertebral disc disorder [Unknown]
  - Exostosis [Unknown]
  - Spinal cord disorder [Unknown]
  - Pulmonary valve incompetence [Unknown]
  - Hepatic lesion [Unknown]
  - Biliary cyst [Unknown]
  - Cognitive disorder [Unknown]
  - Tremor [Unknown]
  - Gait disturbance [Unknown]
  - Hypometabolism [Unknown]
  - Musculoskeletal chest pain [Unknown]
  - General physical health deterioration [Unknown]
  - Musculoskeletal pain [Unknown]
  - Pulmonary mass [Unknown]
  - Osteosclerosis [Unknown]
  - Cyst [Unknown]
  - Arthralgia [Unknown]
  - Patellofemoral pain syndrome [Unknown]
  - Chondropathy [Unknown]
  - Spinal column stenosis [Unknown]
  - Facet joint syndrome [Unknown]
  - Vertebral foraminal stenosis [Unknown]
  - Intervertebral disc space narrowing [Unknown]
  - Bone marrow oedema [Unknown]
  - Chorioretinitis [Unknown]
  - Polyarthritis [Unknown]
  - Chondrosis [Unknown]
  - Suicidal ideation [Unknown]
  - Acute coronary syndrome [Unknown]
  - Chest pain [Unknown]
  - Humerus fracture [Unknown]
  - Vascular anomaly [Unknown]
  - Hiatus hernia [Unknown]
  - Osteonecrosis of jaw [Unknown]
  - Bone lesion [Unknown]
  - Bone disorder [Unknown]
  - Metastases to spine [Not Recovered/Not Resolved]
  - Intervertebral disc protrusion [Unknown]
  - Spinal osteoarthritis [Unknown]
  - Lumbar spinal stenosis [Unknown]
  - Back pain [Unknown]
  - Metastases to thorax [Not Recovered/Not Resolved]
  - Metastases to liver [Unknown]
  - Bronchitis [Unknown]
  - Pulmonary congestion [Unknown]
  - Ear congestion [Unknown]
  - Depression [Unknown]
  - Infected dermal cyst [Unknown]
  - Chronic obstructive pulmonary disease [Unknown]
  - Urinary incontinence [Unknown]
  - Urinary tract infection [Unknown]
  - Gastrooesophageal reflux disease [Unknown]
  - Dyspepsia [Unknown]
  - Abdominal pain upper [Unknown]
  - Nausea [Unknown]
  - Constipation [Unknown]
  - Pain [Unknown]
  - Fall [Unknown]
  - Pain in extremity [Unknown]
  - Hepatic cyst [Unknown]
  - Red blood cell count increased [Unknown]
